FAERS Safety Report 16644989 (Version 13)
Quarter: 2024Q1

REPORT INFORMATION
  Report Type: Spontaneous
  Country: US (occurrence: US)
  Receive Date: 20190729
  Receipt Date: 20240130
  Transmission Date: 20240410
  Serious: No
  Sender: FDA-Public Use
  Company Number: US-SA-2019SA202795

PATIENT
  Age: 65 Year
  Sex: Female

DRUGS (2)
  1. KEVZARA [Suspect]
     Active Substance: SARILUMAB
     Indication: Rheumatoid arthritis
     Dosage: 200 MG, QOW
     Route: 058
     Dates: start: 201906
  2. KEVZARA [Suspect]
     Active Substance: SARILUMAB
     Dosage: 200 MG, QOW
     Route: 058

REACTIONS (23)
  - Alopecia [Unknown]
  - Weight increased [Unknown]
  - Facial pain [Unknown]
  - Aphonia [Unknown]
  - Eye pain [Unknown]
  - Toothache [Unknown]
  - Ear pain [Unknown]
  - Mass [Unknown]
  - Erythema [Unknown]
  - Peripheral swelling [Unknown]
  - Musculoskeletal pain [Unknown]
  - Discomfort [Unknown]
  - Arthralgia [Unknown]
  - Back pain [Unknown]
  - Intervertebral disc injury [Unknown]
  - Oropharyngeal pain [Unknown]
  - Rash [Unknown]
  - Rash papular [Unknown]
  - Pruritus [Unknown]
  - Erythema [Unknown]
  - Eye infection [Unknown]
  - Nasopharyngitis [Recovering/Resolving]
  - Surgery [Unknown]

NARRATIVE: CASE EVENT DATE: 20190101
